FAERS Safety Report 5356273-4 (Version None)
Quarter: 2007Q2

REPORT INFORMATION
  Report Type: 
  Country: None (occurrence: None)
  Receive Date: 20070612
  Receipt Date: 20070604
  Transmission Date: 20071010
  Serious: Yes (Death)
  Sender: FDA-Public Use
  Company Number: JP-PFIZER INC-2007046144

PATIENT

DRUGS (2)
  1. CABASER [Suspect]
     Indication: PARKINSON'S DISEASE
     Dosage: DAILY DOSE:3MG
  2. PARLODEL [Concomitant]

REACTIONS (2)
  - CARDIAC PROCEDURE COMPLICATION [None]
  - CARDIAC VALVE DISEASE [None]
